FAERS Safety Report 4890639-1 (Version None)
Quarter: 2006Q1

REPORT INFORMATION
  Report Type: 
  Country: None (occurrence: None)
  Receive Date: 20060125
  Receipt Date: 20050209
  Transmission Date: 20060701
  Serious: No
  Sender: FDA-Public Use
  Company Number: US-BRISTOL-MYERS SQUIBB COMPANY-12858080

PATIENT
  Age: 46 Year
  Sex: Female

DRUGS (1)
  1. CARDIOLITE [Suspect]
     Indication: CARDIAC STRESS TEST
     Route: 042
     Dates: start: 20050201, end: 20050201

REACTIONS (3)
  - DYSGEUSIA [None]
  - FEELING COLD [None]
  - VOMITING [None]
